FAERS Safety Report 8632085 (Version 2)
Quarter: 2012Q4

REPORT INFORMATION
  Report Type: 
  Country: FR (occurrence: FR)
  Receive Date: 20120625
  Receipt Date: 20121001
  Transmission Date: 20130627
  Serious: Yes (Other)
  Sender: FDA-Public Use
  Company Number: PHHY2012FR053630

PATIENT
  Sex: Female
  Weight: 108 kg

DRUGS (2)
  1. FEMARA [Suspect]
     Indication: BREAST CANCER
     Dosage: 2.5 mg, QD
     Route: 048
     Dates: start: 201111, end: 20120215
  2. ARIMIDEX [Suspect]
     Indication: BREAST CANCER
     Dosage: UNK UKN, UNK
     Dates: start: 201105, end: 201111

REACTIONS (1)
  - Visual acuity reduced [Recovering/Resolving]
